FAERS Safety Report 7367881-3 (Version None)
Quarter: 2011Q1

REPORT INFORMATION
  Report Type: 
  Country: None (occurrence: None)
  Receive Date: 20110322
  Receipt Date: 20110314
  Transmission Date: 20110831
  Serious: Yes (Other)
  Sender: FDA-Public Use
  Company Number: CA-AMGEN-CANCT2011012080

PATIENT
  Age: 57 Year
  Sex: Male

DRUGS (11)
  1. PREDNISONE [Concomitant]
     Dosage: 5 MG, BID
     Route: 048
     Dates: start: 20070401
  2. PANTOLOC [Concomitant]
     Dosage: 40 MG, QD
     Route: 048
     Dates: start: 20060501
  3. WELLBUTRIN XL [Concomitant]
     Dosage: 150 MG, QD
     Dates: start: 20060101
  4. ETANERCEPT [Suspect]
     Indication: RHEUMATOID ARTHRITIS
     Dosage: 50 MG, QWK
     Route: 058
     Dates: start: 20090321
  5. HYZAAR [Concomitant]
     Dosage: UNK UNK, QD
     Route: 048
     Dates: start: 20040101
  6. BENADRYL [Concomitant]
     Dosage: 25 MG, QWK
     Route: 048
     Dates: start: 20090502
  7. FOLIC ACID [Concomitant]
     Dosage: 5 MG, QD
     Route: 048
     Dates: start: 20070101
  8. METHOTREXATE [Concomitant]
     Dosage: 20 MG, QWK
     Route: 048
     Dates: start: 20080820, end: 20090913
  9. ASPIRIN [Concomitant]
     Dosage: 81 MG, QD
     Route: 048
     Dates: start: 20040101
  10. NORVASC [Concomitant]
     Dosage: 10 MG, QD
     Route: 048
     Dates: start: 20050101
  11. LIPITOR [Concomitant]
     Dosage: 10 MG, QD
     Route: 048
     Dates: start: 20070101

REACTIONS (1)
  - BLADDER NEOPLASM [None]
